FAERS Safety Report 8380342-8 (Version None)
Quarter: 2012Q2

REPORT INFORMATION
  Report Type: 
  Country: None (occurrence: None)
  Receive Date: 20120523
  Receipt Date: 20120427
  Transmission Date: 20120825
  Serious: No
  Sender: FDA-Public Use
  Company Number: DE-ASTRAZENECA-2012SE28412

PATIENT
  Age: 75 Year
  Sex: Male

DRUGS (9)
  1. ATACAND [Suspect]
     Indication: HYPERTENSION
     Route: 048
     Dates: start: 20120401
  2. ATACAND [Suspect]
     Indication: CORONARY ARTERY DISEASE
     Route: 048
     Dates: start: 20120401
  3. METOPROLOL TARTRATE AND HYDROCHLOROTHIAZIDE [Suspect]
     Indication: HYPERTENSION
     Route: 048
     Dates: start: 20050101
  4. METOPROLOL TARTRATE AND HYDROCHLOROTHIAZIDE [Suspect]
     Indication: CORONARY ARTERY DISEASE
     Route: 048
     Dates: start: 20050101
  5. TORSEMIDE [Suspect]
     Indication: HYPERTENSION
     Route: 048
     Dates: start: 20120401
  6. TORSEMIDE [Suspect]
     Indication: CORONARY ARTERY DISEASE
     Route: 048
     Dates: start: 20120401
  7. ATACAND HCT [Suspect]
     Indication: HYPERTENSION
     Dosage: 16/12.5 MG
     Route: 048
     Dates: start: 20050101, end: 20120401
  8. ATACAND HCT [Suspect]
     Indication: CORONARY ARTERY DISEASE
     Dosage: 16/12.5 MG
     Route: 048
     Dates: start: 20050101, end: 20120401
  9. ANTIBIOTICS [Concomitant]
     Indication: BENIGN PROSTATIC HYPERPLASIA
     Dates: start: 20120101

REACTIONS (4)
  - HYPOTENSION [None]
  - VERTIGO [None]
  - DIZZINESS [None]
  - DRY MOUTH [None]
